FAERS Safety Report 5420816-2 (Version None)
Quarter: 2007Q3

REPORT INFORMATION
  Report Type: 
  Country: None (occurrence: None)
  Receive Date: 20070821
  Receipt Date: 20070809
  Transmission Date: 20080115
  Serious: Yes (Hospitalization)
  Sender: FDA-Public Use
  Company Number: JP-AMGEN-US232743

PATIENT
  Sex: Male
  Weight: 45 kg

DRUGS (6)
  1. ENBREL [Suspect]
     Indication: RHEUMATOID ARTHRITIS
     Route: 058
     Dates: start: 20070525, end: 20070609
  2. ALFAROL [Concomitant]
     Route: 048
  3. CYTOTEC [Concomitant]
     Route: 048
  4. RISEDRONATE SODIUM [Concomitant]
     Route: 048
  5. PREDONINE [Concomitant]
     Route: 048
     Dates: start: 20040126
  6. LOXONIN [Concomitant]
     Route: 048

REACTIONS (3)
  - C-REACTIVE PROTEIN INCREASED [None]
  - MYALGIA [None]
  - PYREXIA [None]
